FAERS Safety Report 6868598 (Version 3)
Quarter: 2020Q3

REPORT INFORMATION
  Report Type: Report from Study
  Country: BR (occurrence: BR)
  Receive Date: 20081229
  Receipt Date: 20090717
  Transmission Date: 20201105
  Serious: Yes (Other)
  Sender: FDA-Public Use
  Company Number: BR-ROCHE-604029

PATIENT
  Age: 62 Year
  Sex: Female
  Weight: 59 kg

DRUGS (6)
  1. NOVALGINA [Concomitant]
     Active Substance: METAMIZOLE SODIUM
     Dosage: DOSE: RARELY
  2. LEVOTHYROXINE. [Concomitant]
     Active Substance: LEVOTHYROXINE
     Indication: HYPOTHYROIDISM
     Route: 048
  3. IBANDRONIC ACID. [Suspect]
     Active Substance: IBANDRONIC ACID
     Indication: OSTEOPENIA
     Route: 048
     Dates: start: 200706
  4. ALUMINUM HYDROXIDE\DIMETHICONE\SILICON DIOXIDE [Concomitant]
     Active Substance: ALUMINUM HYDROXIDE\DIMETHICONE
     Dosage: DOSING FREQUENCY: SOMETIMES, DRUG: DIMETICONE
     Route: 048
  5. IBANDRONIC ACID. [Suspect]
     Active Substance: IBANDRONIC ACID
     Route: 048
     Dates: start: 200801, end: 20081215
  6. ENALAPRIL [Concomitant]
     Active Substance: ENALAPRIL
     Dosage: DRUG: ANGIOPRIL

REACTIONS (9)
  - Tachycardia [Recovering/Resolving]
  - Lymphadenitis [Recovered/Resolved]
  - Surgery [Recovered/Resolved]
  - Chest pain [Not Recovered/Not Resolved]
  - Breast mass [Unknown]
  - Aortic dilatation [Not Recovered/Not Resolved]
  - Breast pain [Not Recovered/Not Resolved]
  - Back pain [Not Recovered/Not Resolved]
  - Hypertension [Unknown]

NARRATIVE: CASE EVENT DATE: 20070101
